FAERS Safety Report 7553502-3 (Version None)
Quarter: 2011Q2

REPORT INFORMATION
  Report Type: 
  Country: None (occurrence: None)
  Receive Date: 20110617
  Receipt Date: 20110607
  Transmission Date: 20111010
  Serious: Yes (Other)
  Sender: FDA-Public Use
  Company Number: US-BAYER-201010642NA

PATIENT
  Age: 37 Year
  Sex: Female
  Weight: 122.45 kg

DRUGS (3)
  1. LEVSIN [Concomitant]
     Indication: ABDOMINAL PAIN
     Dosage: UNK UNK, QID
  2. YASMIN [Suspect]
     Indication: CONTRACEPTION
     Dosage: UNK
     Route: 048
     Dates: start: 20041101, end: 20071201
  3. PREVACID [Concomitant]
     Dosage: 30 MG, QD
     Dates: start: 20070827

REACTIONS (4)
  - CHOLECYSTITIS ACUTE [None]
  - PAIN [None]
  - CHOLECYSTITIS CHRONIC [None]
  - INJURY [None]
